FAERS Safety Report 13229639 (Version 2)
Quarter: 2017Q2

REPORT INFORMATION
  Report Type: Spontaneous
  Country: US (occurrence: US)
  Receive Date: 20170214
  Receipt Date: 20170531
  Transmission Date: 20170830
  Serious: Yes (Disabling, Other)
  Sender: FDA-Public Use
  Company Number: US-AUROBINDO-AUR-APL-2017-29499

PATIENT
  Age: 34 Year
  Sex: Male

DRUGS (2)
  1. ACETAMINOPHEN TABLET [Suspect]
     Active Substance: ACETAMINOPHEN
     Dosage: UNK
     Route: 045
  2. ACETAMINOPHEN TABLET [Suspect]
     Active Substance: ACETAMINOPHEN
     Indication: OROPHARYNGEAL PAIN
     Dosage: 40 CRUSHED PARACETAMOL TABLETS PER DAY
     Route: 065

REACTIONS (6)
  - Necrosis [Recovered/Resolved with Sequelae]
  - Drug use disorder [Unknown]
  - Nasal necrosis [Recovered/Resolved with Sequelae]
  - Pharyngeal necrosis [Recovered/Resolved]
  - Incorrect route of drug administration [Recovered/Resolved]
  - Dysphagia [Recovered/Resolved]
